FAERS Safety Report 18832671 (Version 2)
Quarter: 2021Q1

REPORT INFORMATION
  Report Type: Spontaneous
  Country: BR (occurrence: BR)
  Receive Date: 20210203
  Receipt Date: 20210316
  Transmission Date: 20210419
  Serious: Yes (Other)
  Sender: FDA-Public Use
  Company Number: BR-AMGEN-BRASP2015068507

PATIENT
  Age: 69 Year
  Sex: Female
  Weight: 61 kg

DRUGS (13)
  1. PURAN [Concomitant]
     Active Substance: LEVOTHYROXINE SODIUM
     Indication: PRODUCT USED FOR UNKNOWN INDICATION
     Dosage: 75 MG, DAILY (1 TABLET EVERY DAY, AT NIGHT)
  2. PREDNISONE. [Concomitant]
     Active Substance: PREDNISONE
     Dosage: UNK
     Dates: start: 2012
  3. ENBREL [Suspect]
     Active Substance: ETANERCEPT
     Indication: RHEUMATOID ARTHRITIS
     Dosage: 50 MILLIGRAM, QWK
     Route: 058
     Dates: start: 201506, end: 20160103
  4. LOSARTAN. [Concomitant]
     Active Substance: LOSARTAN
     Dosage: 50 MG (1 TABLET), IN THE MORNING
  5. PROFLAM [ACECLOFENAC] [Concomitant]
     Indication: PAIN
     Dosage: UNK, AS NEEDED
  6. DILTIAZEM. [Concomitant]
     Active Substance: DILTIAZEM
     Indication: DEPRESSION
     Dosage: 60 MG, 2X/DAY (1 TABLET IN THE MORNING AND ANOTHER ONE AT NIGHT)
  7. CARBAMAZEPIN [Concomitant]
     Active Substance: CARBAMAZEPINE
     Indication: DEPRESSION
     Dosage: 100 MG (HALF TABLET OF 200MG), AT NIGHT
     Route: 048
  8. IBUPROFEN. [Concomitant]
     Active Substance: IBUPROFEN
     Indication: PAIN
     Dosage: UNK, AS NEEDED
  9. ALENDRONATE SODIUM. [Concomitant]
     Active Substance: ALENDRONATE SODIUM
     Indication: OSTEOPOROSIS
     Dosage: UNK, WEEKLY
  10. ENBREL [Suspect]
     Active Substance: ETANERCEPT
     Indication: HYPERTENSION
     Dosage: 50 MILLIGRAM, QWK
     Route: 058
  11. AMITRIPTYLINE [Concomitant]
     Active Substance: AMITRIPTYLINE
     Indication: DEPRESSION
     Dosage: 37.5 MG (1 AND A HALF TABLET OF 25MG), AT NIGHT
  12. PARACETAMOL [Concomitant]
     Active Substance: ACETAMINOPHEN
     Indication: HEADACHE
     Dosage: UNK, AS NEEDED (SPORADICALLY)
  13. MELOXICAM. [Concomitant]
     Active Substance: MELOXICAM
     Indication: PAIN
     Dosage: UNK, AS NEEDED

REACTIONS (13)
  - Feeling hot [Not Recovered/Not Resolved]
  - Joint dislocation [Unknown]
  - Condition aggravated [Recovered/Resolved]
  - Gait disturbance [Not Recovered/Not Resolved]
  - Visual impairment [Unknown]
  - Labyrinthitis [Recovered/Resolved]
  - Cataract [Unknown]
  - Cystitis [Recovered/Resolved]
  - Fatigue [Not Recovered/Not Resolved]
  - Fall [Unknown]
  - Bronchitis [Recovered/Resolved]
  - Retinal degeneration [Unknown]
  - Arthralgia [Unknown]

NARRATIVE: CASE EVENT DATE: 2015
